FAERS Safety Report 11952345 (Version 1)
Quarter: 2016Q1

REPORT INFORMATION
  Report Type: Spontaneous
  Country: US (occurrence: US)
  Receive Date: 20160126
  Receipt Date: 20160126
  Transmission Date: 20160526
  Serious: No
  Sender: FDA-Public Use
  Company Number: US-TEVA-627650USA

PATIENT
  Age: 58 Year
  Sex: Female
  Weight: 57.2 kg

DRUGS (2)
  1. ENJUVIA [Suspect]
     Active Substance: ESTROGENS, CONJUGATED SYNTHETIC B
     Route: 065
     Dates: end: 201512
  2. ENJUVIA [Suspect]
     Active Substance: ESTROGENS, CONJUGATED SYNTHETIC B
     Indication: MENOPAUSAL SYMPTOMS
     Route: 065
     Dates: start: 2006, end: 2015

REACTIONS (1)
  - Tension [Not Recovered/Not Resolved]

NARRATIVE: CASE EVENT DATE: 201512
